FAERS Safety Report 10253574 (Version 1)
Quarter: 2014Q2

REPORT INFORMATION
  Report Type: Spontaneous
  Country: US (occurrence: US)
  Receive Date: 20140623
  Receipt Date: 20140623
  Transmission Date: 20141212
  Serious: No
  Sender: FDA-Public Use
  Company Number: US-ZOGENIX, INC.-2011ZX000314

PATIENT
  Age: 46 Year
  Sex: Female
  Weight: 117.13 kg

DRUGS (4)
  1. SUMAVEL DOSEPRO [Suspect]
     Indication: MIGRAINE
     Dates: start: 20110510, end: 20110510
  2. SUMAVEL DOSEPRO [Suspect]
     Dates: start: 201105, end: 201105
  3. SUMAVEL DOSEPRO [Suspect]
     Dates: start: 201105, end: 201105
  4. PREDNISONE [Concomitant]
     Indication: HEADACHE

REACTIONS (9)
  - Road traffic accident [Recovered/Resolved]
  - Injection site pain [Recovered/Resolved]
  - Flushing [Recovered/Resolved]
  - Concussion [Unknown]
  - Contusion [Unknown]
  - Swelling face [Unknown]
  - Nausea [Recovered/Resolved]
  - Drug ineffective [Recovered/Resolved]
  - Extra dose administered [Recovered/Resolved]
